FAERS Safety Report 9394494 (Version 1)
Quarter: 2013Q3

REPORT INFORMATION
  Report Type: Spontaneous
  Country: DE (occurrence: DE)
  Receive Date: 20130711
  Receipt Date: 20130711
  Transmission Date: 20140515
  Serious: Yes (Death, Other)
  Sender: FDA-Public Use
  Company Number: PHHY2013DE072609

PATIENT
  Sex: 0

DRUGS (9)
  1. CICLOSPORIN [Suspect]
     Indication: PROPHYLAXIS AGAINST GRAFT VERSUS HOST DISEASE
  2. METHOTREXATE [Suspect]
     Indication: PROPHYLAXIS AGAINST GRAFT VERSUS HOST DISEASE
  3. AMSACRINE [Concomitant]
     Indication: SURGICAL PRECONDITIONING
  4. FLUDARABINE [Concomitant]
     Indication: SURGICAL PRECONDITIONING
  5. CYTARABINE [Concomitant]
     Indication: SURGICAL PRECONDITIONING
  6. CYCLOPHOSPHAMIDE [Concomitant]
  7. ANTITHYMOCYTE IMMUNOGLOBULIN [Concomitant]
  8. BUSULFAN [Concomitant]
     Indication: SURGICAL PRECONDITIONING
  9. CASPOFUNGIN [Concomitant]
     Indication: ANTIFUNGAL PROPHYLAXIS

REACTIONS (2)
  - Acute lymphocytic leukaemia recurrent [Fatal]
  - Acute graft versus host disease [Recovered/Resolved]
